FAERS Safety Report 10742476 (Version 1)
Quarter: 2015Q1

REPORT INFORMATION
  Report Type: Report from Study
  Country: FR (occurrence: FR)
  Receive Date: 20150127
  Receipt Date: 20150127
  Transmission Date: 20150721
  Serious: Yes (Other)
  Sender: FDA-Public Use
  Company Number: FR-MYLANLABS-2015M1001885

PATIENT

DRUGS (8)
  1. FENOFIBRATE. [Concomitant]
     Active Substance: FENOFIBRATE
     Dosage: UNK, QD
     Route: 048
     Dates: start: 1995
  2. VENLAFAXINE [Concomitant]
     Active Substance: VENLAFAXINE HYDROCHLORIDE
     Dosage: UNK UNK, QD
     Route: 048
     Dates: start: 2012
  3. LISINOPRIL. [Concomitant]
     Active Substance: LISINOPRIL
     Dosage: UNK UNK, QD
     Route: 048
     Dates: start: 1995
  4. RILMENIDINE [Concomitant]
     Active Substance: RILMENIDINE
     Dosage: UNK UNK, QD
     Route: 048
     Dates: start: 1995
  5. FONDAPARINUX [Suspect]
     Active Substance: FONDAPARINUX
     Indication: THROMBOPHLEBITIS SUPERFICIAL
     Dosage: 5 MG, QD
     Route: 058
     Dates: start: 20140922, end: 20141111
  6. ALLOPURINOL. [Concomitant]
     Active Substance: ALLOPURINOL
     Dosage: UNK, QD
     Route: 048
     Dates: start: 1995
  7. PREDNISOL                          /00016201/ [Concomitant]
     Dosage: UNK UNK, QD
     Route: 048
     Dates: start: 201109
  8. SOLUPRED                           /00016201/ [Concomitant]
     Active Substance: PREDNISOLONE
     Dosage: UNK UNK, QD
     Route: 048
     Dates: start: 201109

REACTIONS (1)
  - Thrombophlebitis superficial [Unknown]

NARRATIVE: CASE EVENT DATE: 20141222
